FAERS Safety Report 18355029 (Version 1)
Quarter: 2020Q4

REPORT INFORMATION
  Report Type: Spontaneous
  Country: US (occurrence: US)
  Receive Date: 20201006
  Receipt Date: 20201006
  Transmission Date: 20210114
  Serious: Yes (Hospitalization)
  Sender: FDA-Public Use
  Company Number: None

PATIENT
  Age: 63 Year
  Sex: Male
  Weight: 92 kg

DRUGS (1)
  1. ATENOLOL (ATENOLO 50MG TAB) [Suspect]
     Active Substance: ATENOLOL
     Indication: HYPERTENSION
     Dosage: 1/2 TAB EVERY DAY PO?
     Route: 048
     Dates: start: 20190607

REACTIONS (2)
  - Intentional overdose [None]
  - Bradycardia [None]

NARRATIVE: CASE EVENT DATE: 20200528
